FAERS Safety Report 4698855-9 (Version None)
Quarter: 2005Q2

REPORT INFORMATION
  Report Type: 
  Country: None (occurrence: None)
  Receive Date: 20050623
  Receipt Date: 20050610
  Transmission Date: 20051028
  Serious: Yes (Hospitalization)
  Sender: FDA-Public Use
  Company Number: 2005083315

PATIENT
  Age: 84 Year
  Sex: Female

DRUGS (10)
  1. SPIRONOLAKTON NM PHARMA (SPIRONOLACTONE) [Suspect]
     Indication: CARDIAC FAILURE
     Dosage: (DAILY), ORAL
     Route: 048
     Dates: end: 20050323
  2. ALDALIX (SPIRONOLACTONE, FUROSEMIDE) [Suspect]
     Indication: CARDIAC FAILURE
     Dosage: (40 MG, DAILY), ORAL
     Route: 048
     Dates: end: 20050323
  3. DIGOXIN [Suspect]
     Indication: ATRIAL FIBRILLATION
     Dosage: (DAILY), ORAL
     Route: 048
     Dates: end: 20050323
  4. SELOKEEN ZOC (METOPROLOL SUCCINATE) [Concomitant]
  5. KALCIPOS-D (CALCIUM CARBONATE, COLECALCIFEROL) [Concomitant]
  6. ASPIRIN [Concomitant]
  7. XALATAN [Concomitant]
  8. TRIOBE (CYANOCOBALAMIN, FOLIC ACID, PYRIDOXINE) [Concomitant]
  9. COSOPT [Concomitant]
  10. LINATIL (ENALAPRIL MALEATE) [Concomitant]

REACTIONS (8)
  - AGGRESSION [None]
  - AGITATION [None]
  - ATRIOVENTRICULAR BLOCK SECOND DEGREE [None]
  - BLOOD CREATININE INCREASED [None]
  - CONFUSIONAL STATE [None]
  - DEHYDRATION [None]
  - FALL [None]
  - THERAPEUTIC AGENT TOXICITY [None]
